FAERS Safety Report 13376616 (Version 2)
Quarter: 2017Q3

REPORT INFORMATION
  Report Type: Spontaneous
  Country: US (occurrence: US)
  Receive Date: 20170328
  Receipt Date: 20170822
  Transmission Date: 20171127
  Serious: No
  Sender: FDA-Public Use
  Company Number: US-LUNDBECK-DKLU2028091

PATIENT
  Sex: Male

DRUGS (2)
  1. NORTHERA [Suspect]
     Active Substance: DROXIDOPA
     Indication: PRODUCT USED FOR UNKNOWN INDICATION
     Dosage: SCEDULE B; TITRATING
     Route: 065
     Dates: start: 20170310
  2. NORTHERA [Suspect]
     Active Substance: DROXIDOPA
     Route: 065
     Dates: end: 20170324

REACTIONS (6)
  - Disorientation [Unknown]
  - Lethargy [Unknown]
  - Dizziness [Unknown]
  - Fatigue [Unknown]
  - Pollakiuria [Unknown]
  - Drug ineffective [Unknown]
